FAERS Safety Report 6107194-0 (Version None)
Quarter: 2009Q1

REPORT INFORMATION
  Report Type: 
  Country: None (occurrence: None)
  Receive Date: 20090309
  Receipt Date: 20090303
  Transmission Date: 20090719
  Serious: Yes (Other)
  Sender: FDA-Public Use
  Company Number: US-KINGPHARMUSA00001-K200900219

PATIENT
  Age: 38 Year
  Sex: Male

DRUGS (2)
  1. SKELAXIN [Suspect]
     Indication: MUSCLE SPASMS
     Dosage: 800 MG, QID
     Route: 048
     Dates: start: 20081101, end: 20090201
  2. NAPROXEN [Concomitant]
     Dosage: UNK
     Dates: end: 20081201

REACTIONS (5)
  - ANGIOEDEMA [None]
  - BLISTER [None]
  - HYPERSENSITIVITY [None]
  - OCULAR HYPERAEMIA [None]
  - PHARYNGEAL OEDEMA [None]
